FAERS Safety Report 6983719-8 (Version None)
Quarter: 2010Q3

REPORT INFORMATION
  Report Type: 
  Country: None (occurrence: None)
  Receive Date: 20100914
  Receipt Date: 20050125
  Transmission Date: 20110219
  Serious: Yes (Hospitalization)
  Sender: FDA-Public Use
  Company Number: US-WYE-H07164408

PATIENT
  Age: 42 Year
  Sex: Male

DRUGS (2)
  1. IBUPROFEN [Suspect]
     Indication: PAIN
     Dosage: ^ABOUT 10 DAILY^
     Route: 048
  2. IBUPROFEN [Suspect]
     Indication: ABDOMINAL PAIN UPPER

REACTIONS (4)
  - GASTRIC ULCER [None]
  - GASTROINTESTINAL HAEMORRHAGE [None]
  - HAEMATOCHEZIA [None]
  - OVERDOSE [None]
